FAERS Safety Report 8511610-4 (Version None)
Quarter: 2012Q3

REPORT INFORMATION
  Report Type: 
  Country: None (occurrence: None)
  Receive Date: 20120716
  Receipt Date: 20120710
  Transmission Date: 20120928
  Serious: Yes (Hospitalization)
  Sender: FDA-Public Use
  Company Number: PHHY2012BR049982

PATIENT
  Sex: Female

DRUGS (6)
  1. AMIODARONE HYDROCHLORIDE [Concomitant]
     Dosage: 200 MG,1 TABLET IN THE MORNING
  2. SERTRALINE HYDROCHLORIDE [Concomitant]
     Indication: ANXIETY
     Dosage: 1 DF, A DAY
     Route: 048
  3. PRISION [Concomitant]
     Dosage: 2 DF, A DAY
     Route: 048
  4. DIOVAN HCT [Suspect]
     Indication: HYPERTENSION
     Dosage: 1 DF (160/UNKNOWN), DAILY
  5. AMIODARONE HYDROCHLORIDE [Concomitant]
     Dosage: 100 MG, 1 TABLET AT NIGHT
  6. ZOLPIDEM [Concomitant]
     Indication: SLEEP DISORDER
     Dosage: 1 DF,  DAY
     Route: 048

REACTIONS (1)
  - NO ADVERSE EVENT [None]
